FAERS Safety Report 6531033-7 (Version None)
Quarter: 2010Q1

REPORT INFORMATION
  Report Type: 
  Country: None (occurrence: None)
  Receive Date: 20100108
  Receipt Date: 20091005
  Transmission Date: 20100710
  Serious: No
  Sender: FDA-Public Use
  Company Number: A0810390A

PATIENT
  Age: 76 Year
  Sex: Male

DRUGS (3)
  1. LOVAZA [Suspect]
     Indication: DRUG USE FOR UNKNOWN INDICATION
     Dosage: 2CAP TWICE PER DAY
     Route: 048
     Dates: start: 20090922
  2. PERCOCET [Concomitant]
  3. ALLI [Concomitant]

REACTIONS (1)
  - RECTAL DISCHARGE [None]
